FAERS Safety Report 9895859 (Version 1)
Quarter: 2014Q1

REPORT INFORMATION
  Report Type: Spontaneous
  Country: US (occurrence: US)
  Receive Date: 20140213
  Receipt Date: 20140213
  Transmission Date: 20141002
  Serious: No
  Sender: FDA-Public Use
  Company Number: US-BRISTOL-MYERS SQUIBB COMPANY-17252453

PATIENT
  Age: 48 Year
  Sex: Female
  Weight: 89.79 kg

DRUGS (1)
  1. ABATACEPT SUBQ INJECTION 125MG/ML [Suspect]
     Indication: RHEUMATOID ARTHRITIS
     Dosage: INJECTION?LAST DOSE: 27DEC2012
     Route: 058
     Dates: start: 2012

REACTIONS (2)
  - Pain in extremity [Not Recovered/Not Resolved]
  - Infection [Recovered/Resolved]
